FAERS Safety Report 16068549 (Version 1)
Quarter: 2019Q1

REPORT INFORMATION
  Report Type: Spontaneous
  Country: SE (occurrence: SE)
  Receive Date: 20190313
  Receipt Date: 20190313
  Transmission Date: 20190418
  Serious: Yes (Death)
  Sender: FDA-Public Use
  Company Number: SE-MYLANLABS-2019M1023521

PATIENT
  Age: 95 Year
  Sex: Male

DRUGS (3)
  1. RAMIPRIL. [Concomitant]
     Active Substance: RAMIPRIL
     Dosage: UNK
  2. ELIQUIS [Concomitant]
     Active Substance: APIXABAN
     Dosage: UNK
  3. ATORVASTATIN [Suspect]
     Active Substance: ATORVASTATIN
     Indication: CARDIAC FAILURE
     Dosage: 1 DOSAGE FORM, QD
     Route: 048

REACTIONS (2)
  - Renal failure [Fatal]
  - Hepatic failure [Fatal]

NARRATIVE: CASE EVENT DATE: 20180730
